FAERS Safety Report 7283765 (Version 4)
Quarter: 2013Q1

REPORT INFORMATION
  Report Type: Spontaneous
  Country: US (occurrence: US)
  Receive Date: 20100218
  Receipt Date: 20130318
  Transmission Date: 20140127
  Serious: Yes (Hospitalization, Other)
  Sender: FDA-Public Use
  Company Number: US-BAYER-201014007NA

PATIENT
  Age: 28 Year
  Sex: Female
  Weight: 70.3 kg

DRUGS (16)
  1. YAZ [Suspect]
     Indication: ACNE
     Dosage: UNK
     Dates: start: 20080718, end: 20100506
  2. YAZ [Suspect]
     Indication: CONTRACEPTION
     Dosage: UNK
     Dates: start: 201002, end: 201010
  3. YAZ [Suspect]
     Indication: PREMENSTRUAL SYNDROME
  4. YAZ [Suspect]
     Indication: PREMENSTRUAL DYSPHORIC DISORDER
  5. GIANVI [Suspect]
     Indication: CONTRACEPTION
     Dosage: UNK
     Dates: start: 20081028, end: 20101208
  6. GIANVI [Suspect]
     Indication: ACNE
  7. GIANVI [Suspect]
     Indication: PREMENSTRUAL SYNDROME
  8. GIANVI [Suspect]
     Indication: PREMENSTRUAL DYSPHORIC DISORDER
  9. SERTRALINE [Concomitant]
  10. ZOLPIDEM [Concomitant]
  11. CYCLOBENZAPRINE [Concomitant]
  12. MELOXICAM [Concomitant]
  13. TRAMADOL [Concomitant]
  14. DILAUDID [Concomitant]
     Indication: PAIN
  15. AMBIEN [Concomitant]
  16. ZOLOFT [Concomitant]

REACTIONS (6)
  - Hyperkalaemia [Unknown]
  - Cholecystectomy [Unknown]
  - Thrombotic thrombocytopenic purpura [None]
  - Splenic infarction [None]
  - Abdominal pain upper [None]
  - Dyspnoea [None]
